FAERS Safety Report 5470216-4 (Version None)
Quarter: 2007Q3

REPORT INFORMATION
  Report Type: 
  Country: None (occurrence: None)
  Receive Date: 20070927
  Receipt Date: 20070918
  Transmission Date: 20080115
  Serious: Yes (Hospitalization, Other)
  Sender: FDA-Public Use
  Company Number: CA-ABBOTT-07P-028-0417552-00

PATIENT
  Sex: Male
  Weight: 76.726 kg

DRUGS (5)
  1. MAVIK [Suspect]
     Indication: HYPERTENSION
     Route: 048
  2. ATORVASTATIN CALCIUM [Concomitant]
     Indication: LIPIDS INCREASED
     Route: 048
     Dates: start: 20010101
  3. AMLODIPINE [Concomitant]
     Indication: HYPERTENSION
     Route: 048
     Dates: start: 20020101
  4. LOPRESSOR SR [Concomitant]
     Indication: ARTERIOSCLEROSIS CORONARY ARTERY
     Route: 048
     Dates: start: 20010101
  5. GLICLAZIDE [Concomitant]
     Indication: DIABETES MELLITUS
     Route: 048
     Dates: start: 20010101

REACTIONS (2)
  - FALL [None]
  - HIP FRACTURE [None]
